FAERS Safety Report 7179660-0 (Version None)
Quarter: 2010Q4

REPORT INFORMATION
  Report Type: 
  Country: None (occurrence: None)
  Receive Date: 20101209
  Receipt Date: 20101129
  Transmission Date: 20110411
  Serious: Yes (Other)
  Sender: FDA-Public Use
  Company Number: 769796

PATIENT
  Age: 12 Year
  Sex: Female

DRUGS (1)
  1. CARBOPLATIN [Suspect]

REACTIONS (1)
  - RENAL FAILURE ACUTE [None]
